FAERS Safety Report 11740036 (Version 1)
Quarter: 2015Q4

REPORT INFORMATION
  Report Type: Spontaneous
  Country: US (occurrence: US)
  Receive Date: 20151113
  Receipt Date: 20151113
  Transmission Date: 20160304
  Serious: No
  Sender: FDA-Public Use
  Company Number: US-BAUSCH-BL-2015-012212

PATIENT
  Sex: Female

DRUGS (2)
  1. PROCARDIA [Concomitant]
     Active Substance: NIFEDIPINE
     Indication: PRODUCT USED FOR UNKNOWN INDICATION
  2. NIFEDICAL XL [Suspect]
     Active Substance: NIFEDIPINE
     Indication: HYPERTENSION

REACTIONS (6)
  - Adverse drug reaction [Recovered/Resolved]
  - Chest pain [Unknown]
  - Malaise [Unknown]
  - Dizziness [Unknown]
  - Tremor [Unknown]
  - Drug ineffective [Unknown]
